FAERS Safety Report 9531121 (Version 2)
Quarter: 2013Q4

REPORT INFORMATION
  Report Type: Report from Study
  Country: AR (occurrence: AR)
  Receive Date: 20130918
  Receipt Date: 20131113
  Transmission Date: 20140711
  Serious: Yes (Hospitalization, Other)
  Sender: FDA-Public Use
  Company Number: PHHY2013AR102467

PATIENT
  Age: 68 Year
  Sex: Male

DRUGS (7)
  1. DIOVAN [Suspect]
     Indication: BLOOD PRESSURE MANAGEMENT
     Route: 048
     Dates: start: 201304, end: 2013
  2. EXFORGE [Suspect]
     Dosage: 1 DF, UNK (320 MG VALS/ 10 MG AMLO)
     Dates: start: 201304, end: 2013
  3. EXFORGE [Suspect]
     Dosage: 2 DF, UNK (320 MG VALS/ 10 MG AMLO)
  4. ENALAPRIL [Suspect]
     Dates: start: 2013
  5. RACORVAL D [Concomitant]
     Dosage: 1 DF, (12,5/ 80 MG)
  6. NEUROPLUS DUAL [Concomitant]
     Indication: AMNESIA
     Dosage: 1 DF (20 MG DONEP/5 MG MEMA), UNK
     Route: 048
  7. ASPIRINETAS [Concomitant]
     Dosage: 100 MG, QD
     Route: 048

REACTIONS (8)
  - Cerebrovascular accident [Recovering/Resolving]
  - Hypokinesia [Unknown]
  - Apathy [Unknown]
  - Feeling abnormal [Recovering/Resolving]
  - Hypertension [Recovering/Resolving]
  - Headache [Not Recovered/Not Resolved]
  - Overweight [Not Recovered/Not Resolved]
  - Laziness [Unknown]
